FAERS Safety Report 5491577-6 (Version None)
Quarter: 2007Q4

REPORT INFORMATION
  Report Type: 
  Country: None (occurrence: None)
  Receive Date: 20071018
  Receipt Date: 20071018
  Transmission Date: 20080405
  Serious: No
  Sender: FDA-Public Use
  Company Number: None

PATIENT
  Age: 52 Year
  Sex: Female

DRUGS (5)
  1. HYPERTONIC SALINE [Suspect]
     Indication: INTRACRANIAL PRESSURE INCREASED
     Dosage: 5% 150 ML
     Dates: start: 20070722
  2. APAP TAB [Concomitant]
  3. ASPIRIN [Concomitant]
  4. INSULIN [Concomitant]
  5. LANSOPRAZOLE [Concomitant]

REACTIONS (4)
  - BLOOD SODIUM INCREASED [None]
  - HYPOREFLEXIA [None]
  - ILL-DEFINED DISORDER [None]
  - REFUSAL OF TREATMENT BY RELATIVE [None]
